FAERS Safety Report 9115893 (Version 1)
Quarter: 2013Q1

REPORT INFORMATION
  Report Type: Report from Study
  Country: JP (occurrence: JP)
  Receive Date: 20130225
  Receipt Date: 20130225
  Transmission Date: 20140127
  Serious: Yes (Hospitalization)
  Sender: FDA-Public Use
  Company Number: JP-B.I. PHARMACEUTICALS,INC./RIDGEFIELD-2012-RU-00654BP

PATIENT
  Age: 74 Year
  Sex: Male

DRUGS (12)
  1. TIOTROPIUM BROMIDE [Suspect]
     Indication: CHRONIC OBSTRUCTIVE PULMONARY DISEASE
     Route: 055
     Dates: start: 20120628, end: 20121118
  2. TIOTROPIUM BROMIDE [Suspect]
     Indication: CHRONIC OBSTRUCTIVE PULMONARY DISEASE
     Route: 055
     Dates: start: 20120628, end: 20121118
  3. OPALMON [Concomitant]
     Indication: SPINAL COLUMN STENOSIS
     Dosage: 15 MCG
     Route: 048
  4. METHICOBAL [Concomitant]
     Indication: SPINAL COLUMN STENOSIS
     Dosage: 1500 MCG
     Route: 048
  5. LORCAM [Concomitant]
     Indication: SPINAL COLUMN STENOSIS
     Dosage: 4 MG
     Route: 048
  6. MUCOSTA [Concomitant]
     Indication: GASTRITIS PROPHYLAXIS
     Dosage: 100 MG
     Route: 048
  7. MOHRUS [Concomitant]
     Indication: SPINAL COLUMN STENOSIS
     Dosage: 30 MG
     Route: 061
  8. THEODUR [Concomitant]
     Indication: CHRONIC OBSTRUCTIVE PULMONARY DISEASE
     Dosage: 200 MG
     Route: 048
  9. MICARDIS [Concomitant]
     Indication: RENAL FAILURE CHRONIC
     Dosage: 40 MG
     Route: 048
  10. FEBURIC [Concomitant]
     Indication: HYPERURICAEMIA
     Dosage: 20 G
     Route: 048
     Dates: start: 20120809
  11. PRORENAL [Concomitant]
     Indication: SPINAL COLUMN STENOSIS
     Dosage: 15 MCG
     Route: 048
     Dates: start: 20121025
  12. PRINK [Concomitant]
     Indication: SPINAL COLUMN STENOSIS
     Dosage: 10 MCG
     Route: 042
     Dates: start: 20121102, end: 20121117

REACTIONS (1)
  - Lung neoplasm malignant [Recovered/Resolved]
